FAERS Safety Report 9939194 (Version 1)
Quarter: 2014Q1

REPORT INFORMATION
  Report Type: Report from Study
  Country: US (occurrence: US)
  Receive Date: 20140303
  Receipt Date: 20140303
  Transmission Date: 20141002
  Serious: Yes (Other)
  Sender: FDA-Public Use
  Company Number: US-ABBVIE-13P-163-1038500-00

PATIENT
  Age: 54 Year
  Sex: Female
  Weight: 59.47 kg

DRUGS (10)
  1. HUMIRA [Suspect]
     Indication: RHEUMATOID ARTHRITIS
  2. HUMIRA [Suspect]
     Dates: start: 201208
  3. LIALDA [Concomitant]
     Indication: CROHN^S DISEASE
  4. WELLBUTRIN [Concomitant]
     Indication: DEPRESSION
  5. WELLBUTRIN [Concomitant]
     Indication: PROPHYLAXIS
  6. UNKNOWN MEDICATION [Concomitant]
     Indication: CROHN^S DISEASE
  7. PROGESTERONE [Concomitant]
     Indication: HORMONE REPLACEMENT THERAPY
  8. HYDROCODONE [Concomitant]
     Indication: ARTHRALGIA
  9. KLONOPIN [Concomitant]
     Indication: INSOMNIA
  10. VITAMIN D [Concomitant]
     Indication: VITAMIN D DEFICIENCY

REACTIONS (4)
  - Gingival operation [Recovering/Resolving]
  - Nasopharyngitis [Recovering/Resolving]
  - Influenza [Recovered/Resolved]
  - Crohn^s disease [Unknown]
